FAERS Safety Report 5591861-1 (Version None)
Quarter: 2008Q1

REPORT INFORMATION
  Report Type: 
  Country: None (occurrence: None)
  Receive Date: 20080115
  Receipt Date: 20080103
  Transmission Date: 20080703
  Serious: Yes (Other)
  Sender: FDA-Public Use
  Company Number: B0502667A

PATIENT
  Sex: Female

DRUGS (2)
  1. SEROXAT [Suspect]
     Dates: start: 19960101
  2. VENLAFAXINE HCL [Concomitant]
     Dates: start: 19990101, end: 20000101

REACTIONS (11)
  - AGGRESSION [None]
  - AMNESIA [None]
  - DIZZINESS [None]
  - DRUG WITHDRAWAL SYNDROME [None]
  - HALLUCINATION [None]
  - MENTAL DISORDER [None]
  - MENTAL IMPAIRMENT [None]
  - NAUSEA [None]
  - PANIC ATTACK [None]
  - SLEEP DISORDER [None]
  - THINKING ABNORMAL [None]
